FAERS Safety Report 23194565 (Version 1)
Quarter: 2023Q4

REPORT INFORMATION
  Report Type: Spontaneous
  Country: IT (occurrence: IT)
  Receive Date: 20231117
  Receipt Date: 20231117
  Transmission Date: 20240110
  Serious: Yes (Other)
  Sender: FDA-Public Use
  Company Number: None

PATIENT
  Age: 80 Year
  Sex: Female

DRUGS (3)
  1. CANRENOATE POTASSIUM [Suspect]
     Active Substance: CANRENOATE POTASSIUM
     Indication: Hypertension
     Dosage: UNK; (NOT KNOWN INITIATION OF THERAPY NOR DOSAGE)
     Route: 048
     Dates: end: 20230918
  2. IRBESARTAN [Suspect]
     Active Substance: IRBESARTAN
     Indication: Hypertension
     Dosage: UNK; (NOT KNOWN INITIATION OF THERAPY NOR DOSAGE)
     Route: 048
     Dates: end: 20230918
  3. HYDROCHLOROTHIAZIDE [Concomitant]
     Active Substance: HYDROCHLOROTHIAZIDE
     Indication: Hypertension
     Dosage: UNK; (NOT KNOWN INITIATION OF THERAPY NOR DOSAGE)
     Route: 048
     Dates: end: 20230918

REACTIONS (3)
  - Bradycardia [Recovered/Resolved]
  - Acute kidney injury [Unknown]
  - Hyperkalaemia [Recovered/Resolved]

NARRATIVE: CASE EVENT DATE: 20230918
